FAERS Safety Report 12914288 (Version 1)
Quarter: 2016Q4

REPORT INFORMATION
  Report Type: Spontaneous
  Country: US (occurrence: US)
  Receive Date: 20161106
  Receipt Date: 20161106
  Transmission Date: 20170207
  Serious: No
  Sender: FDA-Public Use
  Company Number: US-009507513-1610USA016973

PATIENT
  Sex: Female
  Weight: 134.24 kg

DRUGS (5)
  1. KETOROLAC TROMETHAMINE. [Concomitant]
     Active Substance: KETOROLAC TROMETHAMINE
  2. XALKORI [Concomitant]
     Active Substance: CRIZOTINIB
  3. DEXAMETHASONE. [Suspect]
     Active Substance: DEXAMETHASONE
     Dosage: 4 MG TWICE DAILY
     Route: 048
     Dates: start: 20161010
  4. DILAUDID [Concomitant]
     Active Substance: HYDROMORPHONE HYDROCHLORIDE
  5. DEXAMETHASONE. [Suspect]
     Active Substance: DEXAMETHASONE
     Dosage: UNK
     Route: 048

REACTIONS (3)
  - Back pain [Unknown]
  - Wheezing [Unknown]
  - Feeling abnormal [Unknown]
